FAERS Safety Report 18640407 (Version 4)
Quarter: 2021Q1

REPORT INFORMATION
  Report Type: Report from Study
  Country: None (occurrence: US)
  Receive Date: 20201221
  Receipt Date: 20210122
  Transmission Date: 20210419
  Serious: Yes (Death, Hospitalization, Other)
  Sender: FDA-Public Use
  Company Number: US-ABBVIE-20K-163-3643893-00

PATIENT
  Age: 85 Year
  Sex: Male
  Weight: 61.29 kg

DRUGS (17)
  1. GLUCOSAMINE CHONDROITIN [Concomitant]
     Active Substance: CHONDROITIN SULFATE (BOVINE)\GLUCOSAMINE HYDROCHLORIDE
     Indication: OSTEOARTHRITIS
     Dosage: ONE AT BREAKFAST AND ONE AT DINNER (GLUCOSAMINE 750 MILLIGRAMS CHONDROITIN 400 MILLIGRAMS)
  2. PREMARIN [Concomitant]
     Active Substance: ESTROGENS, CONJUGATED
     Indication: EPISTAXIS
     Dosage: PEA SIZE(30 GRAM) PLACE IN NOSTRIL TWICE A WEEK, VAGINAL CREAM
  3. FOLIC ACID. [Concomitant]
     Active Substance: FOLIC ACID
     Indication: PRODUCT USED FOR UNKNOWN INDICATION
     Dosage: AT DINNER, ONE MICROGRAM
  4. DORZOLAMIDE HCL/TIMOLOL MALEATE [Concomitant]
     Active Substance: DORZOLAMIDE HYDROCHLORIDE\TIMOLOL MALEATE
     Indication: OCULAR DISCOMFORT
     Dosage: 1 DROP EACH EYE, MORNING AND EVENING
  5. ACETAMINOPHEN. [Concomitant]
     Active Substance: ACETAMINOPHEN
     Indication: ANALGESIC THERAPY
     Dosage: 1 TABLET AT BREAKFAST?1 TABLET AT BEDTIME
  6. IMDUR [Concomitant]
     Active Substance: ISOSORBIDE MONONITRATE
     Indication: PRODUCT USED FOR UNKNOWN INDICATION
     Dosage: MID MORNING
  7. GABAPENTIN. [Concomitant]
     Active Substance: GABAPENTIN
     Indication: PRODUCT USED FOR UNKNOWN INDICATION
     Dosage: MORNING, MID DAY AND BEDTIME
  8. DONEPEZIL HCL [Concomitant]
     Active Substance: DONEPEZIL HYDROCHLORIDE
     Indication: PRODUCT USED FOR UNKNOWN INDICATION
     Dosage: AT BEDTIME
  9. NORCO [Concomitant]
     Active Substance: ACETAMINOPHEN\HYDROCODONE BITARTRATE
     Indication: PAIN
     Dosage: MIN OF 4 HOURS BETWEEN. ACTUALLY TAKE 2?3 A DAY
  10. QUINAPRIL. [Concomitant]
     Active Substance: QUINAPRIL
     Indication: BLOOD PRESSURE MEASUREMENT
     Dosage: AT BEDTIME
  11. HUMIRA [Suspect]
     Active Substance: ADALIMUMAB
     Indication: RHEUMATOID ARTHRITIS
     Route: 058
     Dates: start: 2017, end: 20201103
  12. PRAVASTATIN. [Concomitant]
     Active Substance: PRAVASTATIN
     Indication: BLOOD CHOLESTEROL
     Dosage: AT BEDTIME
  13. VITAMIN B12 [Concomitant]
     Active Substance: CYANOCOBALAMIN
     Indication: PRODUCT USED FOR UNKNOWN INDICATION
     Dosage: THIRD WEDNESDAY OF MONTH
  14. MEMANTINE. [Concomitant]
     Active Substance: MEMANTINE
     Indication: PRODUCT USED FOR UNKNOWN INDICATION
     Dosage: MORNING AND EVENING
  15. METHOTREXATE. [Concomitant]
     Active Substance: METHOTREXATE
     Indication: ARTHRITIS
     Dosage: 4 TABLETS ON THURSDAY
  16. CALCIUM AND VITAMIN D [Concomitant]
     Active Substance: CALCIUM\VITAMIN D
     Indication: PRODUCT USED FOR UNKNOWN INDICATION
     Dosage: CALCIUM 600 MILLIGRAM AND VITAMIN D(400 IU), ONE AT MID MORNING AND ONE AT DINNER
  17. IRON [Concomitant]
     Active Substance: IRON
     Indication: PRODUCT USED FOR UNKNOWN INDICATION
     Dosage: BREAKFAST AND DINNER

REACTIONS (14)
  - Unresponsive to stimuli [Recovered/Resolved]
  - Endocarditis bacterial [Recovered/Resolved]
  - Hypotension [Unknown]
  - Asthenia [Recovered/Resolved]
  - Fall [Recovered/Resolved]
  - Bacteraemia [Not Recovered/Not Resolved]
  - Blindness [Not Recovered/Not Resolved]
  - Asthenia [Fatal]
  - Hypotension [Recovered/Resolved]
  - Bacteraemia [Recovered/Resolved]
  - Enterococcal bacteraemia [Fatal]
  - Pneumonia [Fatal]
  - Meningoencephalitis bacterial [Fatal]
  - Heart valve calcification [Not Recovered/Not Resolved]

NARRATIVE: CASE EVENT DATE: 20201026
